FAERS Safety Report 5637872-9 (Version None)
Quarter: 2008Q1

REPORT INFORMATION
  Report Type: 
  Country: None (occurrence: None)
  Receive Date: 20080222
  Receipt Date: 20080222
  Transmission Date: 20080703
  Serious: Yes (Other)
  Sender: FDA-Public Use
  Company Number: None

PATIENT
  Sex: Male

DRUGS (1)
  1. HYOSCAMINE 0.375MG ETHEX [Suspect]
     Indication: IRRITABLE BOWEL SYNDROME
     Dosage: 1 BID PO
     Route: 048
     Dates: start: 20071101, end: 20080101

REACTIONS (2)
  - GASTROINTESTINAL PAIN [None]
  - PHARMACEUTICAL PRODUCT COMPLAINT [None]
